FAERS Safety Report 20925980 (Version 1)
Quarter: 2022Q2

REPORT INFORMATION
  Report Type: Spontaneous
  Country: US (occurrence: None)
  Receive Date: 20220607
  Receipt Date: 20220607
  Transmission Date: 20220721
  Serious: Yes (Death)
  Sender: FDA-Public Use
  Company Number: US-ROCHE-3112975

PATIENT
  Sex: Male

DRUGS (1)
  1. ESBRIET [Suspect]
     Active Substance: PIRFENIDONE
     Indication: Acute interstitial pneumonitis
     Dosage: TAKE 3 TABLETS BY MOUTH THREE TIMES A DAY
     Route: 048

REACTIONS (1)
  - Death [Fatal]
